FAERS Safety Report 16521947 (Version 3)
Quarter: 2019Q3

REPORT INFORMATION
  Report Type: Report from Study
  Country: DE (occurrence: DE)
  Receive Date: 20190702
  Receipt Date: 20190916
  Transmission Date: 20191004
  Serious: Yes (Other)
  Sender: FDA-Public Use
  Company Number: DE-MYLANLABS-2019M1061263

PATIENT
  Sex: Female
  Weight: 62 kg

DRUGS (4)
  1. LETROZOLE. [Suspect]
     Active Substance: LETROZOLE
     Indication: BREAST CANCER METASTATIC
     Dosage: 2.5 MG, QD
     Route: 048
     Dates: start: 20180412
  2. KISQALI [Suspect]
     Active Substance: RIBOCICLIB
     Indication: BREAST CANCER METASTATIC
     Dosage: 600 MILLIGRAM, QD
     Route: 048
     Dates: start: 20180412, end: 20180519
  3. KISQALI [Suspect]
     Active Substance: RIBOCICLIB
     Dosage: 600 MG, QD
     Route: 048
     Dates: start: 20180602
  4. FENTANYL. [Suspect]
     Active Substance: FENTANYL
     Indication: PAIN PROPHYLAXIS
     Dosage: 37.5 UG, EVERY 3 DAYS
     Route: 062
     Dates: start: 2018, end: 20180521

REACTIONS (9)
  - Electrocardiogram QT prolonged [Recovered/Resolved]
  - Lacrimation increased [Not Recovered/Not Resolved]
  - Headache [Recovered/Resolved]
  - Gingival bleeding [Recovered/Resolved]
  - Breast pain [Recovered/Resolved]
  - Nausea [Recovered/Resolved]
  - Vomiting [Recovered/Resolved]
  - Platelet count decreased [Recovering/Resolving]
  - Skin haemorrhage [Recovered/Resolved]

NARRATIVE: CASE EVENT DATE: 20180424
